FAERS Safety Report 7418847-6 (Version None)
Quarter: 2011Q2

REPORT INFORMATION
  Report Type: 
  Country: None (occurrence: None)
  Receive Date: 20110415
  Receipt Date: 20110411
  Transmission Date: 20111010
  Serious: No
  Sender: FDA-Public Use
  Company Number: US-PFIZER INC-2011079417

PATIENT
  Age: 48 Year
  Sex: Female

DRUGS (2)
  1. ZITHROMAX [Suspect]
     Dosage: UNK
  2. CLEOCIN [Suspect]
     Dosage: UNK

REACTIONS (3)
  - RASH [None]
  - OEDEMA MOUTH [None]
  - HYPERSENSITIVITY [None]
